FAERS Safety Report 8263229-0 (Version None)
Quarter: 2012Q2

REPORT INFORMATION
  Report Type: 
  Country: None (occurrence: None)
  Receive Date: 20120405
  Receipt Date: 20120326
  Transmission Date: 20120825
  Serious: Yes (Hospitalization)
  Sender: FDA-Public Use
  Company Number: FR-VERTEX PHARMACEUTICALS INC.-AE-2011-000843

PATIENT
  Sex: Female
  Weight: 63 kg

DRUGS (9)
  1. VOGALENE [Concomitant]
     Indication: VOMITING
     Dates: start: 20110513
  2. PROPRANOLOL [Concomitant]
     Indication: HYPERTENSION
  3. ELTROMBOPAG [Concomitant]
     Indication: THROMBOCYTOPENIA
     Route: 048
     Dates: start: 20110308
  4. COPEGUS [Concomitant]
     Indication: HEPATITIS C
     Route: 048
     Dates: start: 20110328, end: 20110628
  5. VX-950 [Suspect]
     Indication: HEPATITIS C
     Route: 048
     Dates: start: 20110502, end: 20110628
  6. ALDACTONE [Concomitant]
     Indication: HYPERTENSION
  7. OMEPRAZOLE [Concomitant]
     Indication: OESOPHAGITIS
  8. NEORECORMON [Concomitant]
     Indication: ANAEMIA
     Dates: start: 20110526
  9. PEGASYS [Concomitant]
     Indication: HEPATITIS C
     Route: 058
     Dates: start: 20110328, end: 20110628

REACTIONS (5)
  - ASCITES [None]
  - OEDEMA [None]
  - ASTHENIA [None]
  - STAPHYLOCOCCAL SEPSIS [None]
  - ANAEMIA [None]
